FAERS Safety Report 7553140-2 (Version None)
Quarter: 2011Q2

REPORT INFORMATION
  Report Type: 
  Country: None (occurrence: None)
  Receive Date: 20110616
  Receipt Date: 20101123
  Transmission Date: 20111010
  Serious: Yes (Death, Disabling)
  Sender: FDA-Public Use
  Company Number: US-BAYER-200923180NA

PATIENT
  Sex: Female
  Weight: 74 kg

DRUGS (40)
  1. MAGNEVIST [Suspect]
     Indication: NUCLEAR MAGNETIC RESONANCE IMAGING ABDOMINAL
     Dosage: UNK
     Dates: start: 20020911, end: 20020911
  2. MAGNEVIST [Suspect]
     Dosage: 30 ML, UNK
     Dates: start: 20050517, end: 20050517
  3. OMNISCAN [Suspect]
     Indication: NUCLEAR MAGNETIC RESONANCE IMAGING
  4. EPOGEN [Concomitant]
     Dosage: 4000 IU, TIW
  5. TRANDATE [Concomitant]
     Dosage: 600 MG, BID
     Route: 048
  6. MAGNEVIST [Suspect]
     Dosage: 30 ML, ONCE
     Dates: start: 20020104, end: 20020104
  7. OPTIMARK [Suspect]
     Indication: NUCLEAR MAGNETIC RESONANCE IMAGING
  8. AMIODARONE HCL [Concomitant]
     Indication: ATRIAL FIBRILLATION
     Dosage: 200 MG, UNK
     Route: 048
     Dates: start: 20070127, end: 20080529
  9. MIDODRINE HYDROCHLORIDE [Concomitant]
     Dosage: 10 MG, UNK
     Route: 048
  10. MULTIHANCE [Suspect]
     Indication: ANGIOGRAM
     Dosage: 30 ML, UNK
     Dates: start: 20061219, end: 20061219
  11. PROHANCE [Suspect]
     Indication: NUCLEAR MAGNETIC RESONANCE IMAGING
  12. METOPROLOL TARTRATE [Concomitant]
     Dosage: 50 MG, BID
     Route: 048
     Dates: start: 20020101
  13. MAGNEVIST [Suspect]
     Dosage: UNK
     Dates: start: 20040116, end: 20040116
  14. MIDODRINE HYDROCHLORIDE [Concomitant]
     Indication: HYPERTENSION
     Dosage: UNK
     Dates: start: 20070809, end: 20080529
  15. ZOCOR [Concomitant]
     Indication: HYPERLIPIDAEMIA
     Dosage: 20 MG, UNK
     Route: 048
     Dates: start: 20070809, end: 20080529
  16. FERROUS SULFATE TAB [Concomitant]
     Dosage: 325 MG, UNK
     Route: 048
  17. ADVAIR DISKUS 100/50 [Concomitant]
     Dosage: UNK UNK, BID
     Route: 055
  18. MAGNEVIST [Suspect]
     Dosage: 40 ML, ONCE
     Dates: start: 20020911, end: 20020911
  19. WARFARIN SODIUM [Concomitant]
     Indication: ATRIAL FIBRILLATION
     Dosage: 2 MG, QD
     Route: 048
     Dates: start: 20061013, end: 20080529
  20. NORVASC [Concomitant]
     Indication: HYPERTENSION
     Dosage: 5 MG, QD
     Route: 048
     Dates: start: 20010820, end: 20080519
  21. RENAGEL [Concomitant]
     Dosage: 400 MG, UNK
     Route: 048
  22. NEXIUM [Concomitant]
     Dosage: 40 MG, UNK
     Route: 048
  23. ASPIRIN [Concomitant]
     Dosage: 81 MG, QD
     Route: 048
  24. BUMEX [Concomitant]
     Dosage: 2.5 MG, QD
     Route: 048
  25. MAGNEVIST [Suspect]
     Indication: NUCLEAR MAGNETIC RESONANCE IMAGING
     Dosage: 30 ML, UNK
     Dates: start: 20021011, end: 20021011
  26. LEVOTHYROXINE SODIUM [Concomitant]
     Indication: HYPOTHYROIDISM
     Dosage: 200 ?G, UNK
     Route: 048
     Dates: start: 20010820, end: 20080417
  27. HUMAN INSULIN [Concomitant]
     Indication: DIABETES MELLITUS
     Dosage: UNK
     Dates: start: 20080101
  28. ALUMINUM HYDROXIDE [Concomitant]
     Dosage: 10 ML, PRN
     Route: 048
  29. ALLOPURINOL [Concomitant]
     Dosage: 100 MG, UNK
     Route: 048
  30. MAGNEVIST [Suspect]
     Indication: ANGIOGRAM
     Dosage: UNK
     Dates: start: 20020730, end: 20020730
  31. GADOLINIUM IN UNSPECIFIED DRUG [Suspect]
     Dosage: UNK
     Dates: start: 20011029, end: 20011029
  32. COMBIVENT [Concomitant]
     Dosage: UNK UNK, Q4HR
     Route: 055
  33. ARANESP [Concomitant]
     Dosage: 100 ?G, BIW
     Route: 058
  34. DIOVAN [Concomitant]
     Dosage: 180 MG, QD
     Route: 048
     Dates: start: 20020101
  35. CAPTOPRIL [Concomitant]
     Dosage: 50 MG, TID
     Route: 048
     Dates: start: 20020101
  36. MAGNEVIST [Suspect]
     Dosage: 26 ML, UNK
     Dates: start: 20040113, end: 20040113
  37. MAGNEVIST [Suspect]
     Dosage: 30 ML, UNK
     Dates: start: 20060822, end: 20060822
  38. INSULIN GLARGINE [Concomitant]
     Indication: DIABETES MELLITUS
     Dosage: 8 UNK, UNK
     Route: 058
     Dates: start: 20060825, end: 20080529
  39. PROCRIT [Concomitant]
     Dosage: 6000 IU, TIW
     Route: 058
     Dates: start: 20010101
  40. FUROSEMIDE [Concomitant]
     Dosage: 40 MG, QD
     Route: 048
     Dates: start: 20020601

REACTIONS (28)
  - FIBROSIS [None]
  - EXTREMITY CONTRACTURE [None]
  - ERYTHEMA [None]
  - PRURITUS [None]
  - JOINT CONTRACTURE [None]
  - SKIN HYPERTROPHY [None]
  - MOTOR DYSFUNCTION [None]
  - JOINT RANGE OF MOTION DECREASED [None]
  - OEDEMA PERIPHERAL [None]
  - SCAR [None]
  - SKIN INDURATION [None]
  - SKIN HYPERPIGMENTATION [None]
  - MUSCULOSKELETAL STIFFNESS [None]
  - SKIN FRAGILITY [None]
  - ANXIETY [None]
  - SKIN ULCER [None]
  - DEFORMITY [None]
  - GENERAL PHYSICAL HEALTH DETERIORATION [None]
  - PAIN [None]
  - ASTHENIA [None]
  - NEPHROGENIC SYSTEMIC FIBROSIS [None]
  - MOBILITY DECREASED [None]
  - DRY SKIN [None]
  - MUSCLE TIGHTNESS [None]
  - HYPOAESTHESIA [None]
  - ECCHYMOSIS [None]
  - DEPRESSED MOOD [None]
  - SKIN FIBROSIS [None]
